FAERS Safety Report 4613582-1 (Version None)
Quarter: 2005Q1

REPORT INFORMATION
  Report Type: 
  Country: None (occurrence: None)
  Receive Date: 20050321
  Receipt Date: 20050307
  Transmission Date: 20050727
  Serious: Yes (Death, Hospitalization)
  Sender: FDA-Public Use
  Company Number: US-JNJFOC-20050206180

PATIENT
  Sex: Female

DRUGS (8)
  1. DOXIL [Suspect]
     Indication: OVARIAN CANCER METASTATIC
     Dosage: DOSE UNKNOWN, X6 CYCLES
     Route: 042
  2. GEMZAR [Suspect]
     Indication: OVARIAN CANCER METASTATIC
     Dosage: DOSE UNKNOWN, X6 CYCLES
     Route: 042
  3. TAXOL [Suspect]
     Dosage: 80MG, DAYS 1, 8, 15, INTRAVENOUS, EVERY 28 DAYS, X4 CYCLES
     Route: 042
  4. TAXOL [Suspect]
     Dosage: DOSE UNKNOWN, X4 CYCLES
     Route: 042
  5. TAXOL [Suspect]
     Dosage: DOSE UNKNOWN, X4 CYCLES
     Route: 042
  6. TAXOL [Suspect]
     Indication: OVARIAN CANCER METASTATIC
     Dosage: DOSE UNKNOWN, X6 CYCLES
     Route: 042
  7. CARBOPLATIN [Suspect]
     Dosage: DOSE UNKNOWN, X4 CYCLES
     Route: 042
  8. CARBOPLATIN [Suspect]
     Indication: OVARIAN CANCER METASTATIC
     Dosage: DOSE UNKNOWN, X6 CYCLES
     Route: 042

REACTIONS (1)
  - ACUTE MYELOID LEUKAEMIA [None]
